FAERS Safety Report 18771404 (Version 1)
Quarter: 2021Q1

REPORT INFORMATION
  Report Type: Spontaneous
  Country: US (occurrence: US)
  Receive Date: 20210121
  Receipt Date: 20210121
  Transmission Date: 20210419
  Serious: No
  Sender: FDA-Public Use
  Company Number: US-PERRIGO-20US001573

PATIENT
  Sex: Male
  Weight: 72.56 kg

DRUGS (1)
  1. IBUPROFEN. [Suspect]
     Active Substance: IBUPROFEN
     Indication: PAIN
     Dosage: 400 MG, BID
     Route: 048
     Dates: start: 201912, end: 201912

REACTIONS (1)
  - Drug ineffective [Unknown]

NARRATIVE: CASE EVENT DATE: 201912
